FAERS Safety Report 6015167-1 (Version None)
Quarter: 2008Q4

REPORT INFORMATION
  Report Type: 
  Country: None (occurrence: None)
  Receive Date: 20081219
  Receipt Date: 20081219
  Transmission Date: 20090506
  Serious: No
  Sender: FDA-Public Use
  Company Number: None

PATIENT
  Age: 70 Year
  Sex: Female
  Weight: 54.4316 kg

DRUGS (1)
  1. AMBIEN CR [Suspect]
     Indication: INSOMNIA
     Dosage: 12.5 MG DAILY ORAL MOUTH
     Route: 048
     Dates: start: 20060101, end: 20081201

REACTIONS (13)
  - BURNING SENSATION [None]
  - CORNEAL EROSION [None]
  - DRY EYE [None]
  - DRY MOUTH [None]
  - DYSPNOEA [None]
  - FEELING HOT [None]
  - HEADACHE [None]
  - NASAL DRYNESS [None]
  - NEUROPATHY PERIPHERAL [None]
  - PARAESTHESIA [None]
  - PHOTOPHOBIA [None]
  - RHINITIS [None]
  - SCHIRMER'S TEST ABNORMAL [None]
